FAERS Safety Report 11080178 (Version 1)
Quarter: 2015Q2

REPORT INFORMATION
  Report Type: Spontaneous
  Country: FR (occurrence: FR)
  Receive Date: 20150430
  Receipt Date: 20150430
  Transmission Date: 20150821
  Serious: Yes (Other)
  Sender: FDA-Public Use
  Company Number: FR-PFIZER INC-2015139768

PATIENT
  Age: 60 Year
  Sex: Female

DRUGS (8)
  1. ISOPTIN [Interacting]
     Active Substance: VERAPAMIL HYDROCHLORIDE
     Indication: PRINZMETAL ANGINA
     Dosage: 120 MG, 1X/DAY
     Route: 048
     Dates: start: 1999
  2. IKOREL [Concomitant]
     Active Substance: NICORANDIL
     Dosage: 10 MG, 2X/DAY
     Route: 048
     Dates: start: 1999
  3. TAHOR [Suspect]
     Active Substance: ATORVASTATIN CALCIUM
     Indication: HYPERCHOLESTEROLAEMIA
     Dosage: 40 MG, 1X/DAY
     Route: 048
     Dates: start: 200610
  4. BI-TILDIEM [Interacting]
     Active Substance: DILTIAZEM
     Indication: PRINZMETAL ANGINA
     Dosage: 90 MG, 1X/DAY
     Route: 048
     Dates: start: 1999
  5. CLOPIDOGREL /01220705/ [Concomitant]
     Dosage: 75 MG, 1X/DAY
     Route: 048
     Dates: start: 1999
  6. BI-TILDIEM [Interacting]
     Active Substance: DILTIAZEM
     Dosage: 120 MG, 1X/DAY
     Route: 048
     Dates: start: 1999
  7. TAHOR [Interacting]
     Active Substance: ATORVASTATIN CALCIUM
     Dosage: 20 MG, DAILY
     Dates: start: 201501
  8. MONICOR L.P. [Concomitant]
     Dosage: 1.5 DF, 1X/DAY
     Route: 048
     Dates: start: 1999

REACTIONS (6)
  - Hypoaesthesia [Not Recovered/Not Resolved]
  - Neuralgia [Not Recovered/Not Resolved]
  - Burning sensation [Not Recovered/Not Resolved]
  - Sense of oppression [Not Recovered/Not Resolved]
  - Drug interaction [Not Recovered/Not Resolved]
  - Pain in extremity [Not Recovered/Not Resolved]

NARRATIVE: CASE EVENT DATE: 2009
